FAERS Safety Report 9516940 (Version 1)
Quarter: 2013Q3

REPORT INFORMATION
  Report Type: Spontaneous
  Country: US (occurrence: US)
  Receive Date: 20130911
  Receipt Date: 20130911
  Transmission Date: 20140515
  Serious: No
  Sender: FDA-Public Use
  Company Number: US-PFIZER INC-2013256125

PATIENT
  Sex: 0

DRUGS (1)
  1. TORISEL [Suspect]
     Indication: OVARIAN CANCER STAGE III
     Dosage: UNK, WEEKLY
     Dates: end: 20130823

REACTIONS (3)
  - Off label use [Unknown]
  - Pyrexia [Not Recovered/Not Resolved]
  - Chills [Not Recovered/Not Resolved]
